FAERS Safety Report 10255089 (Version 2)
Quarter: 2014Q3

REPORT INFORMATION
  Report Type: Spontaneous
  Country: DE (occurrence: DE)
  Receive Date: 20140624
  Receipt Date: 20140710
  Transmission Date: 20150326
  Serious: Yes (Disabling, Other)
  Sender: FDA-Public Use
  Company Number: DE-PFIZER INC-2014169462

PATIENT
  Sex: Male

DRUGS (2)
  1. MINPROG [Suspect]
     Active Substance: ALPROSTADIL
     Indication: CARDIAC FAILURE
     Dosage: UNK
     Dates: start: 2004
  2. MINPROG [Suspect]
     Active Substance: ALPROSTADIL
     Indication: CARDIAC DISORDER

REACTIONS (1)
  - Cardiac arrest [Unknown]

NARRATIVE: CASE EVENT DATE: 2004
